FAERS Safety Report 9261868 (Version 4)
Quarter: 2013Q4

REPORT INFORMATION
  Report Type: Report from Study
  Country: US (occurrence: US)
  Receive Date: 20130429
  Receipt Date: 20131114
  Transmission Date: 20140711
  Serious: Yes (Hospitalization, Other)
  Sender: FDA-Public Use
  Company Number: US-US-EMD SERONO, INC.-7207490

PATIENT
  Sex: Female
  Weight: 43 kg

DRUGS (6)
  1. REBIF [Suspect]
     Indication: MULTIPLE SCLEROSIS
     Route: 058
     Dates: start: 20120802
  2. VALIUM                             /00017001/ [Concomitant]
     Indication: PRODUCT USED FOR UNKNOWN INDICATION
  3. MARINOL [Concomitant]
     Indication: PRODUCT USED FOR UNKNOWN INDICATION
  4. VITAMIN B12                        /00056201/ [Concomitant]
     Indication: PRODUCT USED FOR UNKNOWN INDICATION
  5. IRON [Concomitant]
     Indication: PRODUCT USED FOR UNKNOWN INDICATION
  6. BOTOX [Concomitant]
     Indication: MIGRAINE

REACTIONS (7)
  - Functional gastrointestinal disorder [Recovering/Resolving]
  - Oesophageal neoplasm [Recovered/Resolved]
  - Gallbladder disorder [Unknown]
  - Hernia [Unknown]
  - Weight decreased [Unknown]
  - Insomnia [Unknown]
  - Restlessness [Unknown]
